FAERS Safety Report 25133880 (Version 1)
Quarter: 2025Q1

REPORT INFORMATION
  Report Type: Spontaneous
  Country: SK (occurrence: SK)
  Receive Date: 20250328
  Receipt Date: 20250328
  Transmission Date: 20250409
  Serious: Yes (Other)
  Sender: TEVA
  Company Number: SK-TEVA-VS-3313175

PATIENT
  Age: 50 Year
  Sex: Male

DRUGS (6)
  1. BISOPROLOL [Suspect]
     Active Substance: BISOPROLOL
     Indication: Ventricular extrasystoles
     Route: 065
  2. VERAPAMIL [Interacting]
     Active Substance: VERAPAMIL HYDROCHLORIDE
     Indication: Ventricular extrasystoles
     Route: 065
  3. BICTEGRAVIR [Interacting]
     Active Substance: BICTEGRAVIR
     Indication: HIV infection
     Route: 065
  4. EMTRICITABINE [Concomitant]
     Active Substance: EMTRICITABINE
     Indication: HIV infection
     Route: 065
  5. TENOFOVIR ALAFENAMIDE [Concomitant]
     Active Substance: TENOFOVIR ALAFENAMIDE
     Indication: HIV infection
     Route: 065
  6. PROPAFENONE [Concomitant]
     Active Substance: PROPAFENONE
     Indication: Ventricular extrasystoles
     Route: 065

REACTIONS (3)
  - Drug interaction [Unknown]
  - Drug ineffective [Unknown]
  - Electrocardiogram QT prolonged [Recovered/Resolved]
